FAERS Safety Report 21919770 (Version 1)
Quarter: 2023Q1

REPORT INFORMATION
  Report Type: Spontaneous
  Country: FR (occurrence: FR)
  Receive Date: 20230127
  Receipt Date: 20230127
  Transmission Date: 20230418
  Serious: Yes (Other)
  Sender: FDA-Public Use
  Company Number: None

PATIENT
  Age: 15 Year
  Sex: Male

DRUGS (5)
  1. LANSOPRAZOLE [Suspect]
     Active Substance: LANSOPRAZOLE
     Indication: Wisdom teeth removal
     Dosage: DOSAGE UNKNOWN
     Route: 065
     Dates: start: 20220219, end: 20220219
  2. TRAMADOL [Suspect]
     Active Substance: TRAMADOL
     Indication: Wisdom teeth removal
     Dosage: DOSAGE UNKNOWN
     Route: 065
     Dates: start: 20220219, end: 20220219
  3. KETOPROFEN [Suspect]
     Active Substance: KETOPROFEN
     Indication: Wisdom teeth removal
     Dosage: DOSAGE UNKNOWN
     Route: 065
     Dates: start: 20220219, end: 20220219
  4. DOLIPRANE [Suspect]
     Active Substance: ACETAMINOPHEN
     Indication: Wisdom teeth removal
     Dosage: DOSAGE UNKNOWN
     Route: 065
     Dates: start: 20220219, end: 20220219
  5. AUGMENTIN [Suspect]
     Active Substance: AMOXICILLIN\CLAVULANATE POTASSIUM
     Indication: Wisdom teeth removal
     Dosage: DOSAGE UNKNOWN
     Route: 065
     Dates: start: 20220219, end: 20220219

REACTIONS (1)
  - Angioedema [Recovered/Resolved]

NARRATIVE: CASE EVENT DATE: 20220219
